FAERS Safety Report 10674046 (Version 2)
Quarter: 2015Q1

REPORT INFORMATION
  Report Type: Spontaneous
  Country: US (occurrence: None)
  Receive Date: 20141222
  Receipt Date: 20150115
  Transmission Date: 20150720
  Serious: Yes (Other)
  Sender: FDA-Public Use
  Company Number: ADR-2014-02381

PATIENT
  Age: 21 Year
  Sex: Male

DRUGS (6)
  1. FLOMAX [Suspect]
     Active Substance: TAMSULOSIN HYDROCHLORIDE
  2. BACLOFEN. [Suspect]
     Active Substance: BACLOFEN
     Indication: MUSCLE SPASTICITY
  3. LIORESAL [Suspect]
     Active Substance: BACLOFEN
     Indication: MUSCLE SPASTICITY
  4. HYDROCODONE [Suspect]
     Active Substance: HYDROCODONE
  5. NEURONTIN [Suspect]
     Active Substance: GABAPENTIN
  6. MIRALAX [Suspect]
     Active Substance: POLYETHYLENE GLYCOL 3350

REACTIONS (6)
  - Headache [None]
  - Muscle spasticity [None]
  - Implant site scar [None]
  - Nausea [None]
  - Malaise [None]
  - Device dislocation [None]

NARRATIVE: CASE EVENT DATE: 20141205
